FAERS Safety Report 8041825-3 (Version None)
Quarter: 2012Q1

REPORT INFORMATION
  Report Type: 
  Country: None (occurrence: None)
  Receive Date: 20120112
  Receipt Date: 20120107
  Transmission Date: 20120608
  Serious: Yes (Hospitalization, Other)
  Sender: FDA-Public Use
  Company Number: US-PFIZER INC-2012005007

PATIENT
  Sex: Male
  Weight: 221 kg

DRUGS (2)
  1. INSULIN [Concomitant]
     Indication: DIABETES MELLITUS
     Dosage: UNK
     Dates: end: 20120101
  2. IBUPROFEN (ADVIL) [Suspect]
     Indication: PAIN
     Dosage: 200 MG, UNK
     Route: 048
     Dates: end: 20120101

REACTIONS (9)
  - DIZZINESS [None]
  - GASTRIC ULCER HAEMORRHAGE [None]
  - HEADACHE [None]
  - NAUSEA [None]
  - HEART RATE INCREASED [None]
  - OVERDOSE [None]
  - INFLUENZA [None]
  - MALAISE [None]
  - CHILLS [None]
